FAERS Safety Report 14540280 (Version 2)
Quarter: 2018Q2

REPORT INFORMATION
  Report Type: Spontaneous
  Country: US (occurrence: US)
  Receive Date: 20180216
  Receipt Date: 20180410
  Transmission Date: 20180711
  Serious: Yes (Death, Other)
  Sender: FDA-Public Use
  Company Number: US-JNJFOC-20180220716

PATIENT
  Age: 81 Year
  Sex: Male

DRUGS (21)
  1. IMBRUVICA [Suspect]
     Active Substance: IBRUTINIB
     Indication: PRODUCT USED FOR UNKNOWN INDICATION
     Route: 048
     Dates: start: 20180219
  2. CARVEDILOL. [Concomitant]
     Active Substance: CARVEDILOL
  3. IPRATROPIUM [Concomitant]
     Active Substance: IPRATROPIUM
  4. SYNTHROID [Concomitant]
     Active Substance: LEVOTHYROXINE SODIUM
  5. INSULIN LISPRO [Concomitant]
     Active Substance: INSULIN LISPRO
  6. PROTAMINE [Concomitant]
     Active Substance: PROTAMINE
  7. NITROGLYCERIN. [Concomitant]
     Active Substance: NITROGLYCERIN
  8. ALBUTEROL. [Concomitant]
     Active Substance: ALBUTEROL
  9. ASPIRIN. [Concomitant]
     Active Substance: ASPIRIN
  10. ATORVASTATIN CALCIUM. [Concomitant]
     Active Substance: ATORVASTATIN CALCIUM
  11. FUROSEMIDE. [Concomitant]
     Active Substance: FUROSEMIDE
  12. LISINOPRIL. [Concomitant]
     Active Substance: LISINOPRIL
  13. FINASTERIDE. [Concomitant]
     Active Substance: FINASTERIDE
  14. METFORMIN HYDROCHLORIDE. [Concomitant]
     Active Substance: METFORMIN HYDROCHLORIDE
  15. FLOMAX [Concomitant]
     Active Substance: TAMSULOSIN HYDROCHLORIDE
  16. AMIODARONE [Concomitant]
     Active Substance: AMIODARONE
  17. DOCUSATE SODIUM. [Concomitant]
     Active Substance: DOCUSATE SODIUM
  18. IMBRUVICA [Suspect]
     Active Substance: IBRUTINIB
     Indication: PRODUCT USED FOR UNKNOWN INDICATION
     Route: 048
  19. MICRO-K [Concomitant]
     Active Substance: POTASSIUM CHLORIDE
  20. BUDESONIDE. [Concomitant]
     Active Substance: BUDESONIDE
  21. PRADAXA [Concomitant]
     Active Substance: DABIGATRAN ETEXILATE MESYLATE

REACTIONS (3)
  - Hip fracture [Unknown]
  - Death [Fatal]
  - Fall [Unknown]

NARRATIVE: CASE EVENT DATE: 201801
